FAERS Safety Report 7967770-7 (Version None)
Quarter: 2011Q4

REPORT INFORMATION
  Report Type: 
  Country: None (occurrence: None)
  Receive Date: 20111209
  Receipt Date: 20111205
  Transmission Date: 20120403
  Serious: Yes (Other)
  Sender: FDA-Public Use
  Company Number: US-BAYER-2011-006452

PATIENT
  Age: 50 Year
  Sex: Male
  Weight: 91.61 kg

DRUGS (12)
  1. TRACRIUM [Concomitant]
     Dosage: 80 MG, UNK
     Route: 042
     Dates: start: 19990730
  2. HEPARIN [Concomitant]
     Dosage: 9000 U, UNK
     Route: 042
     Dates: start: 19990730
  3. LIPITOR [Concomitant]
     Dosage: UNK
     Route: 048
     Dates: start: 19990101
  4. ANECTINE [Concomitant]
     Dosage: UNK
     Route: 042
     Dates: start: 19990730
  5. TRASYLOL [Suspect]
     Indication: AORTIC BYPASS
     Dosage: UNK
     Route: 042
     Dates: start: 19990701
  6. NEOSTIGMINE [Concomitant]
     Dosage: UNK
     Route: 042
     Dates: start: 19990730
  7. TRASYLOL [Suspect]
     Indication: THROMBOEMBOLECTOMY
  8. ATENOLOL [Concomitant]
     Dosage: UNK
     Route: 048
     Dates: start: 19990101
  9. TOPROL-XL [Concomitant]
     Dosage: UNK
     Route: 048
     Dates: start: 19990101
  10. VERSED [Concomitant]
     Dosage: UNK
     Route: 042
     Dates: start: 19990730
  11. ANCEF [Concomitant]
     Dosage: 1 G, UNK
     Route: 042
     Dates: start: 19990730
  12. TRASYLOL [Suspect]
     Indication: ENDARTERECTOMY

REACTIONS (11)
  - RENAL IMPAIRMENT [None]
  - STRESS [None]
  - FEAR [None]
  - ANHEDONIA [None]
  - RENAL FAILURE [None]
  - ANXIETY [None]
  - INJURY [None]
  - PAIN [None]
  - EMOTIONAL DISTRESS [None]
  - UNEVALUABLE EVENT [None]
  - RENAL INJURY [None]
